FAERS Safety Report 9469269 (Version 1)
Quarter: 2013Q3

REPORT INFORMATION
  Report Type: Spontaneous
  Country: GB (occurrence: GB)
  Receive Date: 20130821
  Receipt Date: 20130821
  Transmission Date: 20140515
  Serious: Yes (Other)
  Sender: FDA-Public Use
  Company Number: GB-WATSON-2013-14901

PATIENT
  Sex: Male

DRUGS (4)
  1. CITALOPRAM (UNKNOWN) [Suspect]
     Indication: DEPRESSION
     Dosage: 20 MG, DAILY
     Route: 048
     Dates: start: 20130422
  2. ALFUZOSIN [Concomitant]
     Indication: PRODUCT USED FOR UNKNOWN INDICATION
     Dosage: UNK, UNKNOWN
     Route: 065
  3. IBUPROFEN [Concomitant]
     Indication: PRODUCT USED FOR UNKNOWN INDICATION
     Dosage: UNK, UNKNOWN
     Route: 065
  4. PARACETAMOL [Concomitant]
     Indication: PRODUCT USED FOR UNKNOWN INDICATION
     Dosage: UNK, UNKNOWN
     Route: 065

REACTIONS (11)
  - Dry mouth [Unknown]
  - Anxiety [Unknown]
  - Nervousness [Unknown]
  - Insomnia [Unknown]
  - Tinnitus [Unknown]
  - Ejaculation failure [Unknown]
  - Abnormal dreams [Unknown]
  - Emotional disorder [Unknown]
  - Heart rate abnormal [Unknown]
  - Irritability [Unknown]
  - Fatigue [Unknown]
